FAERS Safety Report 10207413 (Version 1)
Quarter: 2014Q2

REPORT INFORMATION
  Report Type: Spontaneous
  Country: US (occurrence: None)
  Receive Date: 20140527
  Receipt Date: 20140527
  Transmission Date: 20141212
  Serious: Yes (Other)
  Sender: FDA-Public Use
  Company Number: None

PATIENT
  Age: 78 Year
  Sex: Female

DRUGS (5)
  1. MACRODANTIN [Suspect]
     Dates: start: 2007, end: 20120919
  2. OMEPRAZOLE DR [Concomitant]
  3. PROAIR INHALER [Concomitant]
  4. FOSAMAX [Concomitant]
  5. VAGIFEM [Concomitant]

REACTIONS (7)
  - Drug-induced liver injury [None]
  - Fatigue [None]
  - Aphasia [None]
  - Liver palpable subcostal [None]
  - Cholelithiasis [None]
  - Hepatic necrosis [None]
  - Autoimmune hepatitis [None]
